FAERS Safety Report 19002931 (Version 2)
Quarter: 2021Q2

REPORT INFORMATION
  Report Type: Spontaneous
  Country: US (occurrence: US)
  Receive Date: 20210312
  Receipt Date: 20210528
  Transmission Date: 20210717
  Serious: Yes (Life-Threatening, Other)
  Sender: FDA-Public Use
  Company Number: US-BEH-2021129237

PATIENT
  Sex: Female

DRUGS (3)
  1. HIZENTRA [Suspect]
     Active Substance: HUMAN IMMUNOGLOBULIN G
     Indication: IMMUNODEFICIENCY COMMON VARIABLE
     Dosage: UNK
     Route: 058
     Dates: start: 2011, end: 202008
  2. GAMMAGARD [Concomitant]
     Active Substance: HUMAN IMMUNOGLOBULIN G
  3. PRIVIGEN [Suspect]
     Active Substance: HUMAN IMMUNOGLOBULIN G
     Indication: IMMUNODEFICIENCY COMMON VARIABLE
     Dosage: VARIED
     Route: 042
     Dates: start: 201105, end: 202008

REACTIONS (11)
  - Suicidal ideation [Not Recovered/Not Resolved]
  - Clubbing [Unknown]
  - Anger [Unknown]
  - Injection site reaction [Unknown]
  - Neuropathy peripheral [Not Recovered/Not Resolved]
  - Syncope [Unknown]
  - Bone atrophy [Not Recovered/Not Resolved]
  - Chills [Unknown]
  - Fatigue [Unknown]
  - Tooth loss [Not Recovered/Not Resolved]
  - Migraine [Recovering/Resolving]
